FAERS Safety Report 5259332-X (Version None)
Quarter: 2007Q1

REPORT INFORMATION
  Report Type: 
  Country: None (occurrence: None)
  Receive Date: 20070305
  Receipt Date: 20070216
  Transmission Date: 20070707
  Serious: Yes (Other)
  Sender: FDA-Public Use
  Company Number: 6029648

PATIENT
  Age: 64 Year
  Sex: Female

DRUGS (6)
  1. EUTHYROX 75 MCG (LEVOTHYROXINE SODIUM) [Suspect]
     Indication: BLOOD THYROID STIMULATING HORMONE INCREASED
     Dosage: 75 MCG (75 MCG, 1 IN 1 D) ORAL
     Route: 048
     Dates: end: 20070117
  2. ACETYLSALICYLIC ACID SRT [Concomitant]
  3. BIOTIN [Concomitant]
  4. ASCORBIC ACID [Concomitant]
  5. ZINC (ZINC) [Concomitant]
  6. MAGNESIUM (MAGNESIUM SULFATE) [Concomitant]

REACTIONS (13)
  - ALCOHOL PROBLEM [None]
  - APATHY [None]
  - BURNING SENSATION [None]
  - CHEST DISCOMFORT [None]
  - DEPRESSION [None]
  - DYSPNOEA [None]
  - HEADACHE [None]
  - MUSCLE SPASMS [None]
  - MUSCULAR WEAKNESS [None]
  - RESPIRATORY TRACT IRRITATION [None]
  - SCHIZOPHRENIA [None]
  - SUICIDAL IDEATION [None]
  - TREMOR [None]
